FAERS Safety Report 22350562 (Version 1)
Quarter: 2023Q2

REPORT INFORMATION
  Report Type: Spontaneous
  Country: US (occurrence: None)
  Receive Date: 20230521
  Receipt Date: 20230521
  Transmission Date: 20230722
  Serious: Yes (Other)
  Sender: FDA-Public Use
  Company Number: None

PATIENT
  Age: 88 Year
  Sex: Female
  Weight: 63 kg

DRUGS (8)
  1. BETAXOLOL [Suspect]
     Active Substance: BETAXOLOL
     Indication: Glaucoma
     Dosage: FREQUENCY : DAILY;?
     Route: 047
     Dates: start: 20230320, end: 20230520
  2. LEVOTHYROXINE [Concomitant]
     Active Substance: LEVOTHYROXINE
  3. LOVASTATIN [Concomitant]
     Active Substance: LOVASTATIN
  4. HYDROCHLOROTHIAZIDE [Concomitant]
     Active Substance: HYDROCHLOROTHIAZIDE
  5. AMLODIPINE [Concomitant]
     Active Substance: AMLODIPINE BESYLATE
  6. VITAMIN D3 [Concomitant]
     Active Substance: CHOLECALCIFEROL
  7. LUTEIN [Concomitant]
     Active Substance: LUTEIN
  8. Centrum Silver Women 50+ multi vitamin [Concomitant]

REACTIONS (2)
  - Peripheral swelling [None]
  - Peripheral swelling [None]

NARRATIVE: CASE EVENT DATE: 20230521
